FAERS Safety Report 7234121-5 (Version None)
Quarter: 2010Q4

REPORT INFORMATION
  Report Type: 
  Country: None (occurrence: None)
  Receive Date: 20101130
  Receipt Date: 20100514
  Transmission Date: 20110411
  Serious: Yes (Hospitalization, Other)
  Sender: FDA-Public Use
  Company Number: 2009-189737-NL

PATIENT
  Age: 29 Year
  Sex: Female

DRUGS (3)
  1. NUVARING [Suspect]
     Indication: PRODUCT USED FOR UNKNOWN INDICATION
  2. DEXFENFLURAMINE [Suspect]
     Indication: WEIGHT LOSS DIET
     Dosage: PO
     Route: 048
  3. MIGRAINE MEDICATION [Suspect]
     Indication: MIGRAINE

REACTIONS (3)
  - CEREBRAL THROMBOSIS [None]
  - ISCHAEMIC STROKE [None]
  - THROMBOSIS [None]
